FAERS Safety Report 24861411 (Version 1)
Quarter: 2025Q1

REPORT INFORMATION
  Report Type: Spontaneous
  Country: CN (occurrence: CN)
  Receive Date: 20250120
  Receipt Date: 20250120
  Transmission Date: 20250408
  Serious: Yes (Other)
  Sender: MERCK
  Company Number: CN-MFDS-2021000061-2501CHN003618

PATIENT
  Age: 73 Year
  Sex: Female
  Weight: 53.3 kg

DRUGS (3)
  1. JANUMET [Suspect]
     Active Substance: METFORMIN HYDROCHLORIDE\SITAGLIPTIN PHOSPHATE
     Indication: Diabetes mellitus
     Dosage: STRENGTH 50MG/500MG, 1 TABLET, BID
     Route: 048
     Dates: start: 20241118, end: 20241120
  2. JANUMET [Suspect]
     Active Substance: METFORMIN HYDROCHLORIDE\SITAGLIPTIN PHOSPHATE
     Dosage: STRENGTH 50MG/850MG, 1 TABLET, BID
     Route: 048
     Dates: start: 20241120, end: 20241122
  3. JANUMET [Suspect]
     Active Substance: METFORMIN HYDROCHLORIDE\SITAGLIPTIN PHOSPHATE
     Dosage: STRENGTH 50MG/500MG, 1 TABLET, BID
     Route: 048
     Dates: start: 20241122, end: 20241123

REACTIONS (4)
  - Diabetes mellitus inadequate control [Unknown]
  - Nausea [Recovering/Resolving]
  - Vomiting [Recovering/Resolving]
  - Electrolyte imbalance [Unknown]

NARRATIVE: CASE EVENT DATE: 20241101
